FAERS Safety Report 4909553-8 (Version None)
Quarter: 2006Q1

REPORT INFORMATION
  Report Type: 
  Country: None (occurrence: None)
  Receive Date: 20060213
  Receipt Date: 20050218
  Transmission Date: 20060701
  Serious: Yes (Hospitalization)
  Sender: FDA-Public Use
  Company Number: US-MERCK-0502USA02834

PATIENT
  Age: 64 Year
  Sex: Female
  Weight: 93 kg

DRUGS (15)
  1. VIOXX [Suspect]
     Indication: ARTHRALGIA
     Route: 048
     Dates: start: 20001001, end: 20040715
  2. AMARYL [Concomitant]
     Route: 065
  3. PREVACID [Concomitant]
     Route: 065
  4. GLUCOPHAGE [Concomitant]
     Route: 065
  5. ZESTRIL [Concomitant]
     Route: 065
  6. NORVASC [Concomitant]
     Route: 065
  7. AMITRIPTYLINE HYDROCHLORIDE [Concomitant]
     Route: 065
  8. LISINOPRIL [Concomitant]
     Route: 065
  9. ISOSORBIDE [Concomitant]
     Route: 065
  10. LIPITOR [Concomitant]
     Route: 065
  11. INSULIN [Concomitant]
     Route: 065
  12. ATENOLOL [Concomitant]
     Route: 065
  13. METFORMIN [Concomitant]
     Route: 065
  14. HYDROCHLOROTHIAZIDE AND TRIAMTERENE [Concomitant]
     Route: 065
  15. GUANFACINE HYDROCHLORIDE [Concomitant]
     Route: 065

REACTIONS (6)
  - ASTHENIA [None]
  - CHEST PAIN [None]
  - DYSPNOEA [None]
  - INJURY [None]
  - MYOCARDIAL INFARCTION [None]
  - RESPIRATORY DISORDER [None]
